FAERS Safety Report 10995114 (Version 2)
Quarter: 2015Q2

REPORT INFORMATION
  Report Type: Spontaneous
  Country: US (occurrence: US)
  Receive Date: 20150407
  Receipt Date: 20150506
  Transmission Date: 20150821
  Serious: Yes (Other)
  Sender: FDA-Public Use
  Company Number: US-PFIZER INC-2015116982

PATIENT
  Age: 67 Year
  Sex: Female
  Weight: 72 kg

DRUGS (9)
  1. LIPITOR [Suspect]
     Active Substance: ATORVASTATIN CALCIUM
     Indication: BLOOD CHOLESTEROL INCREASED
     Dosage: UNK, AS DIRECTED
     Route: 048
     Dates: start: 1997
  2. LIPITOR [Suspect]
     Active Substance: ATORVASTATIN CALCIUM
     Indication: BLOOD TRIGLYCERIDES INCREASED
     Dosage: 20 MG, DAILY
     Route: 048
     Dates: start: 1997, end: 20100521
  3. RALOXIFENE [Concomitant]
     Active Substance: RALOXIFENE
     Indication: BONE DISORDER
     Dosage: 60 MG, DAILY
     Dates: start: 1998
  4. ASPIRIN. [Concomitant]
     Active Substance: ASPIRIN
     Dosage: 81 MG, DAILY
     Dates: start: 2000
  5. LANOXIN [Concomitant]
     Active Substance: DIGOXIN
     Indication: TACHYCARDIA
     Dosage: 25 MG, DAILY
     Dates: start: 1998
  6. CALCIUM 500+D [Concomitant]
     Active Substance: CALCIUM\VITAMIN D
     Indication: PROPHYLAXIS
     Dosage: 1 DF, DAILY
     Dates: start: 2004, end: 201411
  7. GLUCOSAMINE/CHONDROITIN [Concomitant]
     Indication: ARTHRALGIA
     Dosage: UNK (3 IN THE MORNING AND 1 AT NIGHT, DAILY)
     Dates: start: 2004
  8. TOPROL XL [Concomitant]
     Active Substance: METOPROLOL SUCCINATE
     Indication: TACHYCARDIA
     Dosage: 100 MG, DAILY
     Dates: start: 1998
  9. DIGOXIN. [Concomitant]
     Active Substance: DIGOXIN
     Indication: TACHYCARDIA
     Dosage: 25 MG, DAILY
     Dates: start: 1998

REACTIONS (1)
  - Type 2 diabetes mellitus [Not Recovered/Not Resolved]

NARRATIVE: CASE EVENT DATE: 20100423
